FAERS Safety Report 25521725 (Version 1)
Quarter: 2025Q3

REPORT INFORMATION
  Report Type: Spontaneous
  Country: EU (occurrence: EU)
  Receive Date: 20250706
  Receipt Date: 20250706
  Transmission Date: 20251021
  Serious: Yes (Hospitalization, Disabling, Other)
  Sender: CSL BEHRING
  Company Number: EU-ROCHE-2815247

PATIENT
  Age: 49 Year
  Sex: Male
  Weight: 172 kg

DRUGS (43)
  1. PRIVIGEN [Suspect]
     Active Substance: HUMAN IMMUNOGLOBULIN G
     Indication: Chronic lymphocytic leukaemia
     Route: 065
     Dates: start: 20160323
  2. CYCLOPHOSPHAMIDE [Suspect]
     Active Substance: CYCLOPHOSPHAMIDE
     Indication: Chronic lymphocytic leukaemia
     Route: 065
     Dates: start: 20141118, end: 20150407
  3. CYCLOPHOSPHAMIDE [Suspect]
     Active Substance: CYCLOPHOSPHAMIDE
     Route: 042
     Dates: start: 20141118
  4. CYCLOPHOSPHAMIDE [Suspect]
     Active Substance: CYCLOPHOSPHAMIDE
     Route: 042
     Dates: start: 20141119
  5. CYCLOPHOSPHAMIDE [Suspect]
     Active Substance: CYCLOPHOSPHAMIDE
     Route: 042
     Dates: start: 20141119
  6. CYCLOPHOSPHAMIDE [Suspect]
     Active Substance: CYCLOPHOSPHAMIDE
     Route: 042
     Dates: start: 20241216
  7. CYCLOPHOSPHAMIDE [Suspect]
     Active Substance: CYCLOPHOSPHAMIDE
     Route: 042
     Dates: start: 20150113
  8. CYCLOPHOSPHAMIDE [Suspect]
     Active Substance: CYCLOPHOSPHAMIDE
     Route: 042
     Dates: start: 201502
  9. CYCLOPHOSPHAMIDE [Suspect]
     Active Substance: CYCLOPHOSPHAMIDE
     Route: 042
     Dates: start: 20150310
  10. FLUDARABINE [Suspect]
     Active Substance: FLUDARABINE PHOSPHATE
     Indication: Chronic lymphocytic leukaemia
     Route: 065
     Dates: start: 20141118, end: 20150407
  11. FLUDARABINE [Suspect]
     Active Substance: FLUDARABINE PHOSPHATE
     Route: 042
     Dates: start: 20141118
  12. FLUDARABINE [Suspect]
     Active Substance: FLUDARABINE PHOSPHATE
     Route: 042
     Dates: start: 20141119
  13. FLUDARABINE [Suspect]
     Active Substance: FLUDARABINE PHOSPHATE
     Route: 042
     Dates: start: 20141216
  14. FLUDARABINE [Suspect]
     Active Substance: FLUDARABINE PHOSPHATE
     Route: 042
     Dates: start: 20150113
  15. FLUDARABINE [Suspect]
     Active Substance: FLUDARABINE PHOSPHATE
     Route: 042
     Dates: start: 20150114
  16. FLUDARABINE [Suspect]
     Active Substance: FLUDARABINE PHOSPHATE
     Route: 042
     Dates: start: 20150115
  17. FLUDARABINE [Suspect]
     Active Substance: FLUDARABINE PHOSPHATE
     Route: 042
     Dates: start: 20150310
  18. FLUDARABINE [Suspect]
     Active Substance: FLUDARABINE PHOSPHATE
     Route: 042
     Dates: start: 20150312
  19. FLUDARABINE [Suspect]
     Active Substance: FLUDARABINE PHOSPHATE
     Route: 042
     Dates: start: 201502
  20. FLUDARABINE [Suspect]
     Active Substance: FLUDARABINE PHOSPHATE
     Route: 042
     Dates: start: 20150313
  21. FLUDARABINE [Suspect]
     Active Substance: FLUDARABINE PHOSPHATE
     Route: 042
     Dates: start: 20150407
  22. OBINUTUZUMAB [Suspect]
     Active Substance: OBINUTUZUMAB
     Indication: Chronic lymphocytic leukaemia
     Route: 042
     Dates: start: 20141118, end: 20150407
  23. OBINUTUZUMAB [Suspect]
     Active Substance: OBINUTUZUMAB
     Route: 042
     Dates: start: 20141118, end: 20150407
  24. OBINUTUZUMAB [Suspect]
     Active Substance: OBINUTUZUMAB
     Route: 042
     Dates: start: 20141216
  25. OBINUTUZUMAB [Suspect]
     Active Substance: OBINUTUZUMAB
     Route: 042
     Dates: start: 20150113
  26. OBINUTUZUMAB [Suspect]
     Active Substance: OBINUTUZUMAB
     Route: 042
     Dates: start: 201502
  27. OBINUTUZUMAB [Suspect]
     Active Substance: OBINUTUZUMAB
     Route: 042
     Dates: start: 20150310
  28. OBINUTUZUMAB [Suspect]
     Active Substance: OBINUTUZUMAB
     Route: 042
     Dates: start: 20150407
  29. URSODIOL [Suspect]
     Active Substance: URSODIOL
     Indication: Drug-induced liver injury
     Route: 065
     Dates: start: 201602, end: 201603
  30. KIOVIG [Suspect]
     Active Substance: HUMAN IMMUNOGLOBULIN G
     Indication: Immunoglobulins decreased
     Route: 065
  31. KEPPRA [Suspect]
     Active Substance: LEVETIRACETAM
     Indication: Epilepsy
     Route: 065
     Dates: start: 20160727, end: 20170710
  32. TOPIRAMATE [Suspect]
     Active Substance: TOPIRAMATE
     Indication: Epilepsy
     Route: 065
     Dates: start: 2018, end: 20200221
  33. VIMPAT [Suspect]
     Active Substance: LACOSAMIDE
     Indication: Epilepsy
     Route: 065
     Dates: start: 201706, end: 20200221
  34. ACYCLOVIR [Suspect]
     Active Substance: ACYCLOVIR
     Indication: Varicella zoster virus infection
     Dosage: 400 MG, BID
     Route: 065
     Dates: start: 201509
  35. PREDNISOLONE SODIUM SUCCINATE [Concomitant]
     Active Substance: PREDNISOLONE SODIUM SUCCINATE
     Dates: start: 201411
  36. CIPROFLOXACIN [Concomitant]
     Active Substance: CIPROFLOXACIN
  37. AMPHOTERICIN B [Concomitant]
     Active Substance: AMPHOTERICIN B
  38. ALLOPURINOL [Concomitant]
     Active Substance: ALLOPURINOL
  39. PANTOPRAZOLE SODIUM [Concomitant]
     Active Substance: PANTOPRAZOLE SODIUM
  40. Jonosteril [Concomitant]
  41. CHOLECALCIFEROL [Concomitant]
     Active Substance: CHOLECALCIFEROL
  42. LEUCOVORIN CALCIUM [Concomitant]
     Active Substance: LEUCOVORIN CALCIUM
  43. CHOLECALCIFEROL [Concomitant]
     Active Substance: CHOLECALCIFEROL

REACTIONS (55)
  - Febrile infection [Recovered/Resolved]
  - Dehydration [Recovered/Resolved]
  - Epilepsy [Not Recovered/Not Resolved]
  - Cytopenia [Unknown]
  - Hemiparesis [Unknown]
  - Toxoplasmosis [Recovered/Resolved with Sequelae]
  - Myelosuppression [Unknown]
  - Encephalitis [Unknown]
  - Skin cancer [Unknown]
  - Basal cell carcinoma [Not Recovered/Not Resolved]
  - Organic brain syndrome [Unknown]
  - Drug hypersensitivity [Unknown]
  - Pruritus allergic [Unknown]
  - Gallbladder polyp [Unknown]
  - Nausea [Unknown]
  - Gallbladder polyp [Unknown]
  - Cough [Recovered/Resolved]
  - Dizziness [Unknown]
  - Pain [Unknown]
  - Blepharospasm [Recovered/Resolved]
  - Central nervous system lesion [Not Recovered/Not Resolved]
  - Bacterial disease carrier [Unknown]
  - Nephropathy toxic [Unknown]
  - Abdominal pain upper [Unknown]
  - Abdominal pain [Unknown]
  - Rectal tenesmus [Unknown]
  - Impulse-control disorder [Recovered/Resolved]
  - Folliculitis [Unknown]
  - Fungal infection [Unknown]
  - Dermatitis atopic [Unknown]
  - Back pain [Unknown]
  - Peroneal nerve palsy [Unknown]
  - Pollakiuria [Not Recovered/Not Resolved]
  - Urge incontinence [Not Recovered/Not Resolved]
  - Parosmia [Unknown]
  - Rhinorrhoea [Unknown]
  - Decreased appetite [Unknown]
  - Initial insomnia [Unknown]
  - Muscle twitching [Unknown]
  - Vitamin D deficiency [Unknown]
  - Benign prostatic hyperplasia [Unknown]
  - Taste disorder [Unknown]
  - Eructation [Unknown]
  - Dry mouth [Unknown]
  - Eczema [Unknown]
  - Ear infection [Unknown]
  - Affective disorder [Unknown]
  - Pain [Unknown]
  - Osteoarthritis [Not Recovered/Not Resolved]
  - Pruritus [Unknown]
  - Eye irritation [Unknown]
  - Oedema peripheral [Unknown]
  - Depression [Unknown]
  - Adjustment disorder [Unknown]
  - Product use in unapproved indication [Unknown]

NARRATIVE: CASE EVENT DATE: 20190101
